FAERS Safety Report 4283680-3 (Version None)
Quarter: 2004Q1

REPORT INFORMATION
  Report Type: 
  Country: None (occurrence: None)
  Receive Date: 20040202
  Receipt Date: 20040122
  Transmission Date: 20041129
  Serious: Yes (Other)
  Sender: FDA-Public Use
  Company Number: US-BRISTOL-MYERS SQUIBB COMPANY-12484994

PATIENT
  Age: 36 Year
  Sex: Male
  Weight: 132 kg

DRUGS (6)
  1. CARBOPLATIN [Suspect]
     Indication: MALIGNANT MELANOMA
     Route: 042
     Dates: start: 20040122, end: 20040122
  2. TAXOL [Concomitant]
     Indication: MALIGNANT MELANOMA
     Route: 042
     Dates: start: 20040122, end: 20040122
  3. BENADRYL [Concomitant]
     Indication: PREMEDICATION
     Route: 042
     Dates: start: 20040122, end: 20040122
  4. ZANTAC [Concomitant]
     Indication: PREMEDICATION
     Route: 042
     Dates: start: 20040122, end: 20040122
  5. DECADRON [Concomitant]
     Indication: PREMEDICATION
     Route: 042
     Dates: start: 20040122, end: 20040122
  6. ZOFRAN [Concomitant]
     Indication: PREMEDICATION
     Route: 042
     Dates: start: 20040122, end: 20040122

REACTIONS (4)
  - BLOOD PRESSURE INCREASED [None]
  - DYSPNOEA [None]
  - HYPERHIDROSIS [None]
  - UNRESPONSIVE TO PAIN STIMULI [None]
